FAERS Safety Report 4802133-4 (Version None)
Quarter: 2005Q4

REPORT INFORMATION
  Report Type: 
  Country: None (occurrence: None)
  Receive Date: 20051012
  Receipt Date: 20050929
  Transmission Date: 20060501
  Serious: Yes (Other)
  Sender: FDA-Public Use
  Company Number: 217663

PATIENT
  Age: 13 Year
  Sex: Male

DRUGS (1)
  1. NUTROPIN AQ [Suspect]
     Indication: GROWTH HORMONE DEFICIENCY

REACTIONS (4)
  - GYNAECOMASTIA [None]
  - INCORRECT DOSE ADMINISTERED [None]
  - MASS [None]
  - OVERDOSE [None]
